FAERS Safety Report 4709054-6 (Version None)
Quarter: 2005Q3

REPORT INFORMATION
  Report Type: 
  Country: None (occurrence: None)
  Receive Date: 20050707
  Receipt Date: 20050616
  Transmission Date: 20060218
  Serious: Yes (Other)
  Sender: FDA-Public Use
  Company Number: DSA_70666_2005

PATIENT
  Age: 74 Year
  Sex: Female

DRUGS (5)
  1. DARVOCET-N 100 [Suspect]
     Indication: BACK PAIN
     Dosage: 0.5 TAB QDAY PO
     Route: 048
     Dates: start: 20050528, end: 20050607
  2. DARVOCET-N 100 [Suspect]
     Indication: BACK PAIN
     Dosage: 1 TAB Q DAY PO
     Route: 048
     Dates: start: 20050507, end: 20050501
  3. CARDIZEM CD [Concomitant]
  4. ACYCLOVIR [Concomitant]
  5. KEFLEX [Concomitant]

REACTIONS (5)
  - ALANINE AMINOTRANSFERASE INCREASED [None]
  - ASPARTATE AMINOTRANSFERASE INCREASED [None]
  - BLOOD ALKALINE PHOSPHATASE INCREASED [None]
  - BLOOD PRESSURE SYSTOLIC INCREASED [None]
  - GAMMA-GLUTAMYLTRANSFERASE INCREASED [None]
